FAERS Safety Report 8614482-2 (Version None)
Quarter: 2012Q3

REPORT INFORMATION
  Report Type: 
  Country: None (occurrence: None)
  Receive Date: 20120823
  Receipt Date: 20120813
  Transmission Date: 20120928
  Serious: Yes (Other)
  Sender: FDA-Public Use
  Company Number: PHFR2011GB03574

PATIENT
  Sex: Male

DRUGS (2)
  1. CLOZARIL [Suspect]
     Indication: SCHIZOPHRENIA
     Dosage: 500 MG, QD
     Route: 048
     Dates: start: 20100920
  2. CLOZARIL [Suspect]
     Dosage: 400 MG, DAY
     Route: 048

REACTIONS (7)
  - CHEST PAIN [None]
  - PNEUMONIA [None]
  - PLEURISY [None]
  - SALIVARY HYPERSECRETION [None]
  - SLEEP APNOEA SYNDROME [None]
  - DYSPNOEA [None]
  - TACHYCARDIA [None]
